FAERS Safety Report 5733273-3 (Version None)
Quarter: 2008Q2

REPORT INFORMATION
  Report Type: 
  Country: None (occurrence: None)
  Receive Date: 20080509
  Receipt Date: 20080508
  Transmission Date: 20081010
  Serious: Yes (Life-Threatening)
  Sender: FDA-Public Use
  Company Number: B0503636A

PATIENT
  Age: 11 Year
  Sex: Male

DRUGS (4)
  1. RELENZA [Suspect]
     Indication: INFLUENZA
     Dosage: 5MG TWICE PER DAY
     Route: 055
     Dates: start: 20071231, end: 20080101
  2. BIOFERMIN [Concomitant]
     Route: 048
     Dates: start: 20080101, end: 20080102
  3. CLARITHROMYCIN [Concomitant]
     Dosage: 300MG PER DAY
     Route: 048
     Dates: start: 20080101, end: 20080102
  4. DASEN [Concomitant]
     Dosage: 30MG PER DAY
     Route: 048
     Dates: start: 20080101, end: 20080102

REACTIONS (3)
  - ABNORMAL BEHAVIOUR [None]
  - AGGRESSION [None]
  - TINNITUS [None]
